FAERS Safety Report 16898044 (Version 3)
Quarter: 2020Q1

REPORT INFORMATION
  Report Type: Spontaneous
  Country: ES (occurrence: ES)
  Receive Date: 20191009
  Receipt Date: 20200106
  Transmission Date: 20200409
  Serious: Yes (Life-Threatening, Hospitalization)
  Sender: FDA-Public Use
  Company Number: ES-ACCORD-156683

PATIENT
  Age: 80 Year
  Sex: Female
  Weight: 70 kg

DRUGS (6)
  1. DILTIAZEM. [Interacting]
     Active Substance: DILTIAZEM
     Indication: HYPERTENSION
     Route: 048
     Dates: start: 20180226
  2. BOI K [Interacting]
     Active Substance: ASCORBIC ACID\POTASSIUM BICARBONATE
     Indication: NUTRITIONAL SUPPLEMENTATION
     Dosage: 20 TABLETS
     Route: 048
     Dates: start: 20120101, end: 20180510
  3. VALSARTAN. [Interacting]
     Active Substance: VALSARTAN
     Indication: HYPERTENSION
     Route: 048
     Dates: start: 20120101, end: 20180510
  4. AMIODARONE [Interacting]
     Active Substance: AMIODARONE
     Indication: ARRHYTHMIA
     Route: 048
     Dates: start: 20180226, end: 20180510
  5. TORASEMIDE [Interacting]
     Active Substance: TORSEMIDE
     Indication: HYPERTENSION
     Route: 048
     Dates: start: 20130901, end: 20180510
  6. SPIRONOLACTONE. [Suspect]
     Active Substance: SPIRONOLACTONE
     Indication: HYPERTENSION
     Route: 048
     Dates: start: 20180405, end: 20180510

REACTIONS (4)
  - Hyperkalaemia [Recovered/Resolved]
  - Atrioventricular block complete [Recovered/Resolved with Sequelae]
  - Hypothyroidism [Not Recovered/Not Resolved]
  - Drug interaction [Unknown]

NARRATIVE: CASE EVENT DATE: 20180510
